FAERS Safety Report 24136462 (Version 1)
Quarter: 2024Q3

REPORT INFORMATION
  Report Type: Report from Study
  Country: CA (occurrence: CA)
  Receive Date: 20240725
  Receipt Date: 20240725
  Transmission Date: 20241017
  Serious: Yes (Other)
  Sender: TAKEDA
  Company Number: CA-TAKEDA-2024TUS032727

PATIENT
  Sex: Female

DRUGS (5)
  1. VEDOLIZUMAB [Suspect]
     Active Substance: VEDOLIZUMAB
     Indication: Colitis ulcerative
     Dosage: 300 MILLIGRAM
     Route: 042
     Dates: start: 20231128
  2. VEDOLIZUMAB [Suspect]
     Active Substance: VEDOLIZUMAB
     Indication: Colitis ulcerative
     Dosage: 108 MILLIGRAM, Q2WEEKS
     Route: 058
     Dates: start: 20240109
  3. MESALAMINE [Concomitant]
     Active Substance: MESALAMINE
     Dosage: 4.8 GRAM
     Dates: start: 2018
  4. NAPROSYN [Concomitant]
     Active Substance: NAPROXEN
     Dosage: UNK
  5. Reactine [Concomitant]
     Dosage: 20 MILLIGRAM

REACTIONS (5)
  - Colitis ulcerative [Unknown]
  - Bowel movement irregularity [Not Recovered/Not Resolved]
  - Faeces soft [Not Recovered/Not Resolved]
  - Skin texture abnormal [Unknown]
  - Injection site reaction [Recovering/Resolving]
